FAERS Safety Report 4600122-6 (Version None)
Quarter: 2005Q1

REPORT INFORMATION
  Report Type: 
  Country: None (occurrence: None)
  Receive Date: 20050303
  Receipt Date: 20050221
  Transmission Date: 20050727
  Serious: Yes (Hospitalization)
  Sender: FDA-Public Use
  Company Number: 2005CG00384

PATIENT
  Age: 72 Year
  Sex: Male

DRUGS (3)
  1. ZESTORETIC [Suspect]
     Indication: ESSENTIAL HYPERTENSION
     Dosage: 20 + 12.5 MG QD
  2. VIOXX [Suspect]
     Indication: ARTHRALGIA
     Dates: start: 20040901
  3. KARDEGIC [Concomitant]

REACTIONS (13)
  - ARTHRALGIA [None]
  - ATHEROSCLEROSIS [None]
  - CAROTID ARTERY STENOSIS [None]
  - CEREBRAL ATHEROSCLEROSIS [None]
  - CEREBRAL ISCHAEMIA [None]
  - DIFFICULTY IN WALKING [None]
  - DYSARTHRIA [None]
  - ESSENTIAL HYPERTENSION [None]
  - FACIAL PALSY [None]
  - MALAISE [None]
  - MOTOR DYSFUNCTION [None]
  - TONGUE PARALYSIS [None]
  - VERTEBROBASILAR INSUFFICIENCY [None]
